FAERS Safety Report 25978726 (Version 3)
Quarter: 2025Q4

REPORT INFORMATION
  Report Type: Report from Study
  Country: CN (occurrence: None)
  Receive Date: 20251030
  Receipt Date: 20251120
  Transmission Date: 20260118
  Serious: Yes (Life-Threatening, Hospitalization, Other)
  Sender: JIANGSU HANSOH PHARMACEUTICAL GROUP CO., LTD.
  Company Number: CN-Hansoh-20252190019885

PATIENT
  Age: 62 Year
  Sex: Male

DRUGS (8)
  1. PEMETREXED DISODIUM [Suspect]
     Active Substance: PEMETREXED DISODIUM
     Indication: Non-small cell lung cancer
     Dosage: 908.25MG,EVERY 3 WEEKS
     Dates: start: 20240705, end: 20251017
  2. CAMRELIZUMAB [Suspect]
     Active Substance: CAMRELIZUMAB
     Indication: Non-small cell lung cancer
     Dosage: 200MG,EVERY 3 WEEKS
     Dates: start: 20240705, end: 20251017
  3. CARBOPLATIN [Suspect]
     Active Substance: CARBOPLATIN
     Indication: Non-small cell lung cancer
     Dosage: 622.3MG,EVERY 3 WEEKS
     Dates: start: 20240705, end: 20240705
  4. CARBOPLATIN [Suspect]
     Active Substance: CARBOPLATIN
     Dosage: 608.7MG,EVERY 3 WEEKS
     Dates: start: 20240725, end: 20240725
  5. CARBOPLATIN [Suspect]
     Active Substance: CARBOPLATIN
     Dosage: 613.4MG,EVERY 3 WEEKS
     Dates: start: 20240815, end: 20240815
  6. CARBOPLATIN [Suspect]
     Active Substance: CARBOPLATIN
     Dosage: 670.4MG,EVERY 3 WEEKS
     Dates: start: 20240905, end: 20240905
  7. CARBOPLATIN [Suspect]
     Active Substance: CARBOPLATIN
     Dosage: 727.5MG,EVERY 3 WEEKS
     Dates: start: 20240926, end: 20240926
  8. CARBOPLATIN [Suspect]
     Active Substance: CARBOPLATIN
     Dosage: 720.6MG,EVERY 3 WEEKS
     Dates: start: 20241018, end: 20241018

REACTIONS (1)
  - Platelet count decreased [Recovered/Resolved]

NARRATIVE: CASE EVENT DATE: 20251017
